FAERS Safety Report 6018119-0 (Version None)
Quarter: 2008Q4

REPORT INFORMATION
  Report Type: 
  Country: None (occurrence: None)
  Receive Date: 20081223
  Receipt Date: 20081208
  Transmission Date: 20090506
  Serious: Yes (Hospitalization)
  Sender: FDA-Public Use
  Company Number: AU-GENENTECH-273095

PATIENT
  Sex: Male

DRUGS (6)
  1. BEVACIZUMAB [Suspect]
     Indication: COLON CANCER
     Dosage: 580 MG, Q3W
     Route: 042
     Dates: start: 20081128
  2. CAPECITABINE [Suspect]
     Indication: COLON CANCER
     Dosage: 2000 MG, QAM
     Route: 048
     Dates: start: 20081128
  3. CAPECITABINE [Suspect]
     Dosage: 2500 MG, QPM
  4. NITRAZEPAM [Concomitant]
     Indication: INSOMNIA
     Dosage: UNK
  5. RANITIDINE [Concomitant]
     Indication: GASTROOESOPHAGEAL REFLUX DISEASE
     Dosage: UNK
  6. ZYPREXA [Concomitant]
     Indication: PSYCHOTIC DISORDER
     Dosage: UNK

REACTIONS (2)
  - CHEST PAIN [None]
  - PERICARDITIS [None]
